FAERS Safety Report 14172429 (Version 1)
Quarter: 2017Q4

REPORT INFORMATION
  Report Type: Spontaneous
  Country: US (occurrence: US)
  Receive Date: 20171108
  Receipt Date: 20171108
  Transmission Date: 20180321
  Serious: Yes (Other)
  Sender: FDA-Public Use
  Company Number: None

PATIENT
  Age: 16 Year
  Sex: Male
  Weight: 52.6 kg

DRUGS (1)
  1. CRISABOROLE [Suspect]
     Active Substance: CRISABOROLE
     Indication: ECZEMA
     Route: 061

REACTIONS (3)
  - Burning sensation [None]
  - Facial pain [None]
  - Erythema [None]

NARRATIVE: CASE EVENT DATE: 20171107
